FAERS Safety Report 7072980-X (Version None)
Quarter: 2010Q4

REPORT INFORMATION
  Report Type: 
  Country: None (occurrence: None)
  Receive Date: 20101029
  Receipt Date: 20100402
  Transmission Date: 20110411
  Serious: No
  Sender: FDA-Public Use
  Company Number: A0853766A

PATIENT
  Age: 76 Year
  Sex: Male

DRUGS (16)
  1. ADVAIR DISKUS 100/50 [Suspect]
     Indication: CHRONIC OBSTRUCTIVE PULMONARY DISEASE
     Route: 055
     Dates: start: 20060401
  2. SIMVASTATIN [Concomitant]
  3. COUMADIN [Concomitant]
  4. NITROGLYCERIN [Concomitant]
  5. ALOPURINOL [Concomitant]
  6. GLIMEPIRIDE [Concomitant]
  7. ISOSORBIDE DINITRATE [Concomitant]
  8. BUMEX [Concomitant]
  9. UNSPECIFIED MEDICATION [Concomitant]
  10. ENALAPRIL MALEATE [Concomitant]
  11. POTASSIUM CHLORIDE [Concomitant]
  12. TERAZOSIN HCL [Concomitant]
  13. CARVEDILOL [Concomitant]
  14. MULTI-VITAMIN [Concomitant]
  15. RANITIDINE [Concomitant]
  16. OXYGEN [Concomitant]

REACTIONS (3)
  - CONFUSIONAL STATE [None]
  - DIZZINESS [None]
  - OXYGEN SATURATION DECREASED [None]
